FAERS Safety Report 16769332 (Version 4)
Quarter: 2019Q3

REPORT INFORMATION
  Report Type: Report from Study
  Country: US (occurrence: US)
  Receive Date: 20190903
  Receipt Date: 20190930
  Transmission Date: 20191005
  Serious: Yes (Hospitalization)
  Sender: FDA-Public Use
  Company Number: US-ACTELION-A-NJ2019-194874

PATIENT
  Age: 72 Year
  Sex: Male

DRUGS (13)
  1. SODIUM BICARBONATE. [Concomitant]
     Active Substance: SODIUM BICARBONATE
  2. ALDACTONE [Concomitant]
     Active Substance: SPIRONOLACTONE
  3. LIPITOR [Concomitant]
     Active Substance: ATORVASTATIN CALCIUM
  4. METFORMIN [Concomitant]
     Active Substance: METFORMIN HYDROCHLORIDE
  5. ASA [Concomitant]
     Active Substance: ASPIRIN
  6. OPSUMIT [Suspect]
     Active Substance: MACITENTAN
     Indication: PULMONARY ARTERIAL HYPERTENSION
     Dosage: 10 MG, QD
     Route: 048
     Dates: start: 20170606, end: 20190825
  7. LISINOPRIL + HIDROCLOROTIAZIDA [Concomitant]
     Active Substance: HYDROCHLOROTHIAZIDE\LISINOPRIL
  8. VITAMIN D3 [Concomitant]
     Active Substance: CHOLECALCIFEROL
  9. UPTRAVI [Suspect]
     Active Substance: SELEXIPAG
     Indication: PULMONARY ARTERIAL HYPERTENSION
     Dosage: 1600 MCG, BID
     Route: 048
     Dates: start: 20180307
  10. TOPROL XL [Concomitant]
     Active Substance: METOPROLOL SUCCINATE
  11. OPSUMIT [Suspect]
     Active Substance: MACITENTAN
     Dosage: 10 MG, QD
     Route: 048
  12. VOLTAREN [Concomitant]
     Active Substance: DICLOFENAC SODIUM
  13. AMARYL [Concomitant]
     Active Substance: GLIMEPIRIDE

REACTIONS (14)
  - Pneumonia [Unknown]
  - Pyrexia [Unknown]
  - Carbon dioxide increased [Unknown]
  - Sleep apnoea syndrome [Unknown]
  - Pain [Unknown]
  - Mental status changes [Unknown]
  - Acute myocardial infarction [Recovered/Resolved]
  - Unevaluable event [Unknown]
  - Pleural effusion [Recovered/Resolved]
  - Troponin increased [Recovered/Resolved]
  - Fall [Recovered/Resolved]
  - Condition aggravated [Unknown]
  - Hypoxia [Unknown]
  - Bronchitis [Unknown]

NARRATIVE: CASE EVENT DATE: 20190814
